FAERS Safety Report 9025541 (Version 2)
Quarter: 2013Q1

REPORT INFORMATION
  Report Type: Spontaneous
  Country: US (occurrence: US)
  Receive Date: 20130122
  Receipt Date: 20130211
  Transmission Date: 20140127
  Serious: Yes (Other)
  Sender: FDA-Public Use
  Company Number: US-JNJFOC-20130108381

PATIENT
  Age: 87 None
  Sex: Female
  Weight: 49.9 kg

DRUGS (5)
  1. NUCYNTA [Suspect]
     Indication: PAIN
     Dosage: ONE PER DAY
     Route: 048
  2. NUCYNTA [Suspect]
     Indication: PAIN
     Dosage: 3 TIMES PER DAY
     Route: 048
     Dates: start: 2012
  3. HEART MEDICATION (NOS) [Concomitant]
     Indication: CARDIAC DISORDER
     Route: 065
  4. SEVERAL UNSPECIFIED MEDICATIONS [Concomitant]
     Indication: RESPIRATORY DISORDER
     Route: 065
  5. PATANASE [Concomitant]
     Indication: PRODUCT USED FOR UNKNOWN INDICATION
     Route: 065

REACTIONS (3)
  - Amnesia [Not Recovered/Not Resolved]
  - Weight increased [Not Recovered/Not Resolved]
  - Pain in extremity [Not Recovered/Not Resolved]
